FAERS Safety Report 8818918 (Version 1)
Quarter: 2012Q4

REPORT INFORMATION
  Report Type: Spontaneous
  Country: US (occurrence: None)
  Receive Date: 20121004
  Receipt Date: 20121004
  Transmission Date: 20130627
  Serious: Yes (Hospitalization, Disabling)
  Sender: FDA-Public Use
  Company Number: None

PATIENT
  Age: 23 Year
  Sex: Male
  Weight: 77.11 kg

DRUGS (1)
  1. PROPECIA [Suspect]

REACTIONS (3)
  - Mental disorder [None]
  - Sexual dysfunction [None]
  - Physical disability [None]
